FAERS Safety Report 25307953 (Version 3)
Quarter: 2025Q2

REPORT INFORMATION
  Report Type: Spontaneous
  Country: US (occurrence: US)
  Receive Date: 20250513
  Receipt Date: 20250530
  Transmission Date: 20250717
  Serious: Yes (Death)
  Sender: NOVARTIS
  Company Number: US-002147023-NVSC2025US077103

PATIENT
  Age: 58 Year
  Sex: Female

DRUGS (2)
  1. TAFINLAR [Suspect]
     Active Substance: DABRAFENIB MESYLATE
     Indication: Squamous cell carcinoma of skin
     Dosage: 150 MG, BID
     Route: 048
     Dates: start: 202409
  2. MEKINIST [Suspect]
     Active Substance: TRAMETINIB DIMETHYL SULFOXIDE
     Indication: Squamous cell carcinoma of skin
     Dosage: 40 ML, QD
     Route: 048
     Dates: start: 202409

REACTIONS (3)
  - Squamous cell carcinoma of skin [Fatal]
  - Malignant neoplasm progression [Fatal]
  - Off label use [Unknown]

NARRATIVE: CASE EVENT DATE: 20250408
